FAERS Safety Report 5901802-2 (Version None)
Quarter: 2008Q3

REPORT INFORMATION
  Report Type: 
  Country: None (occurrence: None)
  Receive Date: 20080929
  Receipt Date: 20080924
  Transmission Date: 20090109
  Serious: Yes (Other)
  Sender: FDA-Public Use
  Company Number: HQWYE808203OCT05

PATIENT
  Sex: Female

DRUGS (4)
  1. PREMPRO [Suspect]
  2. ESTRADIOL [Suspect]
  3. MEDROXYPROGESTERONE [Suspect]
  4. PROVERA [Suspect]

REACTIONS (1)
  - BREAST CANCER METASTATIC [None]
